FAERS Safety Report 25433647 (Version 1)
Quarter: 2025Q2

REPORT INFORMATION
  Report Type: Spontaneous
  Country: US (occurrence: None)
  Receive Date: 20250613
  Receipt Date: 20250613
  Transmission Date: 20250717
  Serious: Yes (Hospitalization)
  Sender: FDA-CTU
  Company Number: None

PATIENT
  Age: 53 Year
  Sex: Female
  Weight: 116.3 kg

DRUGS (8)
  1. CYCLOPHOSPHAMIDE [Suspect]
     Active Substance: CYCLOPHOSPHAMIDE
     Dates: start: 20250306, end: 20250511
  2. CYTARABINE [Concomitant]
     Active Substance: CYTARABINE
  3. DEXAMETHASONE [Concomitant]
     Active Substance: DEXAMETHASONE
  4. Doxombicin hydrochloride [Concomitant]
  5. MESNA [Suspect]
     Active Substance: MESNA
  6. METHOTREXATE [Concomitant]
     Active Substance: METHOTREXATE
  7. Panatinib hydrochloride [Concomitant]
  8. VINCRISTINE SULFATE [Concomitant]
     Active Substance: VINCRISTINE SULFATE

REACTIONS (10)
  - Chest pain [None]
  - Pain in extremity [None]
  - Oropharyngeal pain [None]
  - Back pain [None]
  - Chest discomfort [None]
  - Cardiac flutter [None]
  - Nausea [None]
  - Dyspnoea [None]
  - Fatigue [None]
  - Chest discomfort [None]

NARRATIVE: CASE EVENT DATE: 20250526
